FAERS Safety Report 17380277 (Version 3)
Quarter: 2021Q3

REPORT INFORMATION
  Report Type: Spontaneous
  Country: HU (occurrence: HU)
  Receive Date: 20200206
  Receipt Date: 20210703
  Transmission Date: 20211014
  Serious: Yes (Disabling, Other)
  Sender: FDA-Public Use
  Company Number: NVSC2020HU026002

PATIENT
  Age: 43 Year
  Sex: Male

DRUGS (2)
  1. AMOXICILLIN TRIHYDRATE,POTASSIUM CLAVULANATE [Suspect]
     Active Substance: AMOXICILLIN\CLAVULANATE POTASSIUM
     Dosage: UNK
     Route: 065
  2. AMOXICILLIN TRIHYDRATE,POTASSIUM CLAVULANATE [Suspect]
     Active Substance: AMOXICILLIN\CLAVULANATE POTASSIUM
     Indication: SINUSITIS
     Dosage: UNK UNK, TID  (AMOXICILLIN 500 MG AND CLAVULANIC ACID 125 MG)
     Route: 065

REACTIONS (10)
  - Encephalitis [Recovered/Resolved with Sequelae]
  - Muscular weakness [Not Recovered/Not Resolved]
  - Dizziness [Recovered/Resolved with Sequelae]
  - Panic attack [Recovered/Resolved with Sequelae]
  - Eyelid ptosis [Not Recovered/Not Resolved]
  - Palpitations [Recovered/Resolved with Sequelae]
  - Headache [Recovered/Resolved with Sequelae]
  - Altered state of consciousness [Recovered/Resolved with Sequelae]
  - Meningioma [Not Recovered/Not Resolved]
  - Condition aggravated [Not Recovered/Not Resolved]
